FAERS Safety Report 20647822 (Version 1)
Quarter: 2022Q1

REPORT INFORMATION
  Report Type: Report from Study
  Country: DE (occurrence: DE)
  Receive Date: 20220329
  Receipt Date: 20220329
  Transmission Date: 20220424
  Serious: Yes (Hospitalization)
  Sender: FDA-Public Use
  Company Number: DE-Global Blood Therapeutics Inc-DE-GBT-22-01472

PATIENT
  Age: 63 Year
  Sex: Female

DRUGS (3)
  1. VOXELOTOR [Suspect]
     Active Substance: VOXELOTOR
     Indication: Sickle cell disease
     Dates: start: 202112
  2. RBC TRANSFUSIONS [Concomitant]
     Indication: Sickle cell anaemia with crisis
     Dosage: NOT PROVIDED
     Dates: start: 202203
  3. RBC TRANSFUSIONS [Concomitant]
     Indication: Acute chest syndrome

REACTIONS (2)
  - Sickle cell anaemia with crisis [Unknown]
  - Acute chest syndrome [Unknown]

NARRATIVE: CASE EVENT DATE: 20220301
